FAERS Safety Report 7158819-2 (Version None)
Quarter: 2010Q4

REPORT INFORMATION
  Report Type: 
  Country: None (occurrence: None)
  Receive Date: 20101214
  Receipt Date: 20100706
  Transmission Date: 20110411
  Serious: No
  Sender: FDA-Public Use
  Company Number: US-ASTRAZENECA-2010SE31563

PATIENT
  Age: 821 Month
  Sex: Female

DRUGS (21)
  1. CRESTOR [Suspect]
     Route: 048
  2. CRESTOR [Suspect]
     Route: 048
  3. CRESTOR [Suspect]
     Route: 048
  4. CRESTOR [Suspect]
     Route: 048
  5. LISINOPRIL [Suspect]
     Route: 048
  6. NIASPAN [Suspect]
     Route: 048
     Dates: start: 20100524
  7. ALPRAZOLAM [Concomitant]
     Route: 048
  8. LEVOTHYROXINE SODIUM [Concomitant]
  9. ESOMEPRAZOLE SODIUM [Concomitant]
  10. DILTIAZEM HYDROCHLORIDE [Concomitant]
  11. METOPROLOL SUCCINATE [Concomitant]
  12. METOPROLOL SUCCINATE [Concomitant]
  13. METFORMIN [Concomitant]
     Route: 048
  14. FENOFIBRATE [Concomitant]
     Route: 048
  15. DOCUSATE SODIUM [Concomitant]
  16. BIOTIN [Concomitant]
  17. CALCIUM [Concomitant]
     Route: 048
  18. ERGOCALCIFEROL [Concomitant]
     Route: 048
  19. ALGIN [Concomitant]
  20. EZETIMIBE/SIMVASTATIN [Concomitant]
     Dosage: LOW DOSE
  21. ACETYLSALICYLIC ACID [Concomitant]

REACTIONS (5)
  - ABDOMINAL PAIN UPPER [None]
  - BLOOD PRESSURE INCREASED [None]
  - COUGH [None]
  - HEART RATE IRREGULAR [None]
  - PALPITATIONS [None]
